FAERS Safety Report 25970820 (Version 1)
Quarter: 2025Q4

REPORT INFORMATION
  Report Type: Spontaneous
  Country: US (occurrence: None)
  Receive Date: 20251028
  Receipt Date: 20251028
  Transmission Date: 20260117
  Serious: Yes (Other)
  Sender: FDA-CTU
  Company Number: None

PATIENT
  Age: 53 Year
  Sex: Female

DRUGS (1)
  1. OTEZLA [Suspect]
     Active Substance: APREMILAST
     Indication: Psoriasis
     Dosage: 1 DF DOSAGE FORM TWICE A DAY ORAL?
     Route: 048
     Dates: start: 20210630, end: 20251005

REACTIONS (5)
  - Pain in extremity [None]
  - Headache [None]
  - Abdominal discomfort [None]
  - Therapy change [None]
  - Therapy cessation [None]

NARRATIVE: CASE EVENT DATE: 20251028
